FAERS Safety Report 11737125 (Version 1)
Quarter: 2015Q4

REPORT INFORMATION
  Report Type: Spontaneous
  Country: IT (occurrence: IT)
  Receive Date: 20151113
  Receipt Date: 20151113
  Transmission Date: 20160304
  Serious: Yes (Hospitalization)
  Sender: FDA-Public Use
  Company Number: IT-FRI-1000080855

PATIENT
  Age: 86 Year
  Sex: Female

DRUGS (11)
  1. FENTANYL. [Concomitant]
     Active Substance: FENTANYL
     Route: 062
  2. NEBIVOLOL. [Suspect]
     Active Substance: NEBIVOLOL
     Dosage: 2.5 MG
     Route: 048
  3. TRIAZOLAM. [Concomitant]
     Active Substance: TRIAZOLAM
     Route: 048
  4. VASEXTEN [Concomitant]
     Active Substance: BARNIDIPINE
     Route: 048
  5. CARDIOASPIRIN [Suspect]
     Active Substance: ASPIRIN
     Dosage: 100 MG
     Route: 048
  6. ORAMORPH [Concomitant]
     Active Substance: MORPHINE SULFATE
     Route: 048
  7. OXYGEN. [Concomitant]
     Active Substance: OXYGEN
  8. REPAGLINIDE. [Suspect]
     Active Substance: REPAGLINIDE
     Indication: TYPE 2 DIABETES MELLITUS
     Dosage: UNK
     Route: 065
  9. BARNIDIPINE HYDROCHLORIDE [Concomitant]
     Active Substance: BARNIDIPINE HYDROCHLORIDE
  10. MORPHINE SULFATE. [Concomitant]
     Active Substance: MORPHINE SULFATE
     Route: 048
  11. NOLITERAX [Concomitant]
     Route: 048

REACTIONS (1)
  - Hypoglycaemia [Recovering/Resolving]

NARRATIVE: CASE EVENT DATE: 20120904
